FAERS Safety Report 9006869 (Version 2)
Quarter: 2013Q4

REPORT INFORMATION
  Report Type: Spontaneous
  Country: US (occurrence: US)
  Receive Date: 20130110
  Receipt Date: 20131007
  Transmission Date: 20140711
  Serious: Yes (Hospitalization, Disabling, Other)
  Sender: FDA-Public Use
  Company Number: US-009507513-1301USA002710

PATIENT
  Sex: Female
  Weight: 48.75 kg

DRUGS (6)
  1. FOSAMAX [Suspect]
     Indication: OSTEOPOROSIS PROPHYLAXIS
     Dosage: 70 MG, QW
     Route: 048
     Dates: start: 200306
  2. FOSAMAX [Suspect]
     Indication: OSTEOPOROSIS
  3. ALENDRONATE SODIUM [Suspect]
     Indication: OSTEOPOROSIS PROPHYLAXIS
     Dosage: 70 MG, QW
     Route: 048
     Dates: start: 200806, end: 201101
  4. ALENDRONATE SODIUM [Suspect]
     Indication: OSTEOPOROSIS
  5. VITAMIN D (UNSPECIFIED) [Concomitant]
     Dosage: 400 IU, UNK
     Dates: start: 2000
  6. CALCIUM (UNSPECIFIED) (+) VITAMIN D (UNSPECIFIED) [Concomitant]
     Dosage: 250 MG/ 100 UNITS, QID
     Dates: start: 2000

REACTIONS (23)
  - Femur fracture [Not Recovered/Not Resolved]
  - Intramedullary rod insertion [Unknown]
  - Femur fracture [Unknown]
  - Pathological fracture [Unknown]
  - Intramedullary rod insertion [Unknown]
  - Bone graft [Unknown]
  - Arrhythmia [Unknown]
  - Chest discomfort [Unknown]
  - Dizziness [Unknown]
  - Osteonecrosis of jaw [Recovering/Resolving]
  - Depression [Not Recovered/Not Resolved]
  - Anxiety [Not Recovered/Not Resolved]
  - Eating disorder [Not Recovered/Not Resolved]
  - Fracture delayed union [Unknown]
  - Foot fracture [Unknown]
  - Vitamin D deficiency [Unknown]
  - Kidney infection [Unknown]
  - Incorrect dose administered [Unknown]
  - Thyroid neoplasm [Unknown]
  - Gingivitis [Unknown]
  - Urinary tract infection [Unknown]
  - Gastric ulcer [Unknown]
  - Arthralgia [Not Recovered/Not Resolved]
